FAERS Safety Report 9111584 (Version 1)
Quarter: 2013Q1

REPORT INFORMATION
  Report Type: Spontaneous
  Country: US (occurrence: US)
  Receive Date: 20130219
  Receipt Date: 20130219
  Transmission Date: 20140127
  Serious: No
  Sender: FDA-Public Use
  Company Number: US-BRISTOL-MYERS SQUIBB COMPANY-16347395

PATIENT
  Age: 52 Year
  Sex: Female

DRUGS (6)
  1. ORENCIA FOR INJ [Suspect]
     Dosage: ORENCIA PRE-FILLED SYRINGE
     Route: 058
  2. METHOTREXATE [Concomitant]
  3. FOLIC ACID [Concomitant]
  4. IRON SUPPLEMENT [Concomitant]
  5. AZITHROMYCIN [Concomitant]
  6. IBUPROFEN [Concomitant]

REACTIONS (1)
  - Injection site reaction [Unknown]
